FAERS Safety Report 5521223-4 (Version None)
Quarter: 2007Q4

REPORT INFORMATION
  Report Type: 
  Country: None (occurrence: None)
  Receive Date: 20071119
  Receipt Date: 20071107
  Transmission Date: 20080405
  Serious: Yes (Disabling)
  Sender: FDA-Public Use
  Company Number: FR-ASTRAZENECA-2007CG01572

PATIENT
  Age: 43 Year
  Sex: Male

DRUGS (6)
  1. INEXIUM [Suspect]
     Route: 048
     Dates: start: 20060324
  2. KIVEXA [Suspect]
     Indication: HIV TEST POSITIVE
     Route: 048
     Dates: start: 20050909
  3. KALETRA [Suspect]
     Indication: HIV TEST POSITIVE
     Route: 048
     Dates: start: 20000215
  4. CEBUTID [Suspect]
     Route: 048
     Dates: start: 20060324
  5. PEGASYS [Concomitant]
     Dates: start: 20040101, end: 20050101
  6. COPEGUS [Concomitant]
     Dates: start: 20040101, end: 20050101

REACTIONS (1)
  - MACULOPATHY [None]
